FAERS Safety Report 8322195-X (Version None)
Quarter: 2012Q2

REPORT INFORMATION
  Report Type: 
  Country: None (occurrence: None)
  Receive Date: 20120430
  Receipt Date: 20110705
  Transmission Date: 20120825
  Serious: No
  Sender: FDA-Public Use
  Company Number: US-COVIDIEN/TYCO HEALTHCARE/MALLINCKRODT-T201101345

PATIENT
  Age: 58 Year
  Sex: Male

DRUGS (1)
  1. HYDROCODONE BITARTRATE + ACETAMINOPHEN [Suspect]
     Indication: DENTAL DISCOMFORT
     Dosage: 1 TAB, Q 4-6 HOURS
     Dates: start: 20110626, end: 20110628

REACTIONS (3)
  - DIARRHOEA [None]
  - RASH GENERALISED [None]
  - PAIN IN EXTREMITY [None]
